FAERS Safety Report 7835231 (Version 2)
Quarter: 2021Q1

REPORT INFORMATION
  Report Type: Spontaneous
  Country: IT (occurrence: IT)
  Receive Date: 20110301
  Receipt Date: 20210316
  Transmission Date: 20210420
  Serious: Yes (Other)
  Sender: FDA-Public Use
  Company Number: IT-PFIZER INC-2011039447

PATIENT
  Age: 37 Year
  Sex: Male

DRUGS (3)
  1. SUNITINIB MALATE. [Suspect]
     Active Substance: SUNITINIB MALATE
     Indication: PARAGANGLION NEOPLASM
     Dosage: 50 MG DAILY, 4 WEEKS ON 2 WEEKS OFF
     Dates: start: 200804, end: 2008
  2. SUNITINIB MALATE. [Suspect]
     Active Substance: SUNITINIB MALATE
     Dosage: 25 MG, 1X/DAY
     Dates: start: 200811
  3. SUNITINIB MALATE. [Suspect]
     Active Substance: SUNITINIB MALATE
     Dosage: 25 MG, 1X/DAY
     Dates: start: 200807, end: 2008

REACTIONS (5)
  - Oral candidiasis [Unknown]
  - Haematuria [Unknown]
  - Depression [Unknown]
  - Pyrexia [Unknown]
  - Herpes virus infection [Recovering/Resolving]
